FAERS Safety Report 18369559 (Version 1)
Quarter: 2020Q4

REPORT INFORMATION
  Report Type: Other
  Country: IT (occurrence: IT)
  Receive Date: 20201012
  Receipt Date: 20201012
  Transmission Date: 20210114
  Serious: Yes (Hospitalization, Other)
  Sender: FDA-Public Use
  Company Number: IT-INNOGENIX, LLC-2092653

PATIENT
  Age: 21 Year
  Sex: Female
  Weight: 45 kg

DRUGS (2)
  1. BECLOMETHASONE/FORMOTEROL [Suspect]
     Active Substance: BECLOMETHASONE\FORMOTEROL
     Route: 045
  2. PROPRANOLOL HYDROCHLORIDE. [Suspect]
     Active Substance: PROPRANOLOL HYDROCHLORIDE
     Indication: PRODUCT USED FOR UNKNOWN INDICATION
     Route: 048

REACTIONS (3)
  - Suicide attempt [Unknown]
  - Hallucination, visual [Recovered/Resolved]
  - Overdose [Unknown]
